FAERS Safety Report 7314731-7 (Version None)
Quarter: 2011Q1

REPORT INFORMATION
  Report Type: 
  Country: None (occurrence: None)
  Receive Date: 20110225
  Receipt Date: 20101206
  Transmission Date: 20110831
  Serious: No
  Sender: FDA-Public Use
  Company Number: US-MYLANLABS-2010S1021443

PATIENT
  Age: 45 Year
  Sex: Male
  Weight: 86.18 kg

DRUGS (5)
  1. ZOLOFT [Concomitant]
  2. AMNESTEEM [Suspect]
     Indication: ACNE CYSTIC
     Route: 048
     Dates: start: 20101102
  3. FLUTICASONE PROPIONATE [Concomitant]
  4. VALTREX [Concomitant]
  5. VIAGRA [Concomitant]

REACTIONS (2)
  - HAEMATOSPERMIA [None]
  - PROSTATITIS [None]
